FAERS Safety Report 6324646-9 (Version None)
Quarter: 2009Q3

REPORT INFORMATION
  Report Type: 
  Country: None (occurrence: None)
  Receive Date: 20090818
  Receipt Date: 20090514
  Transmission Date: 20100115
  Serious: No
  Sender: FDA-Public Use
  Company Number: WAES 0905USA01853

PATIENT
  Age: 66 Year
  Sex: Male
  Weight: 98.8842 kg

DRUGS (10)
  1. JANUVIA [Suspect]
     Indication: TYPE 2 DIABETES MELLITUS
     Dosage: 100 MG/DAILY/PO
     Route: 048
     Dates: start: 20081114, end: 20090427
  2. METFORMIN HCL [Suspect]
  3. AMARYL [Concomitant]
  4. COZAAR [Concomitant]
  5. JANUMET [Concomitant]
  6. LANTUS [Concomitant]
  7. LIPITOR [Concomitant]
  8. XANAX [Concomitant]
  9. ASPIRIN [Concomitant]
  10. VITAMINS (UNSPECIFIED) [Concomitant]

REACTIONS (1)
  - WEIGHT INCREASED [None]
